FAERS Safety Report 5521617-7 (Version None)
Quarter: 2007Q4

REPORT INFORMATION
  Report Type: 
  Country: None (occurrence: None)
  Receive Date: 20071119
  Receipt Date: 20071119
  Transmission Date: 20080405
  Serious: No
  Sender: FDA-Public Use
  Company Number: None

PATIENT
  Age: 75 Year
  Sex: Male

DRUGS (1)
  1. ABACAVIR [Suspect]
     Dosage: 600MG  EVERY DAY  PO
     Route: 048
     Dates: start: 20071024, end: 20071114

REACTIONS (5)
  - NAUSEA [None]
  - PRURITUS [None]
  - RASH [None]
  - URTICARIA [None]
  - VOMITING [None]
